FAERS Safety Report 9785225 (Version 1)
Quarter: 2013Q4

REPORT INFORMATION
  Report Type: Spontaneous
  Country: US (occurrence: None)
  Receive Date: 20131223
  Receipt Date: 20131223
  Transmission Date: 20140711
  Serious: Yes (Other)
  Sender: FDA-Public Use
  Company Number: EUS-2012-00495

PATIENT
  Sex: 0

DRUGS (1)
  1. ASPARAGINASE [Suspect]
     Indication: LYMPHOMA

REACTIONS (1)
  - Pancreatitis necrotising [None]
